FAERS Safety Report 9752484 (Version 3)
Quarter: 2013Q4

REPORT INFORMATION
  Report Type: Report from Study
  Country: CA (occurrence: CA)
  Receive Date: 20131213
  Receipt Date: 20131219
  Transmission Date: 20140711
  Serious: Yes (Other)
  Sender: FDA-Public Use
  Company Number: CA-UCBSA-105826

PATIENT
  Age: 67 Year
  Sex: Female
  Weight: 67 kg

DRUGS (6)
  1. CIMZIA [Suspect]
     Indication: PSORIATIC ARTHROPATHY
     Route: 058
     Dates: start: 20131115, end: 20131207
  2. CIMZIA [Suspect]
     Indication: RHEUMATOID ARTHRITIS
     Route: 058
     Dates: start: 20131115, end: 20131207
  3. VALSARTAN [Concomitant]
     Indication: HYPERTENSION
     Route: 048
  4. PANTOLOC [Concomitant]
     Indication: GASTRITIS
     Route: 048
  5. VITAMIN D+ CALCIUM [Concomitant]
     Indication: OSTEOPOROSIS PROPHYLAXIS
     Dosage: QD (ONCE DAILY)
     Route: 048
  6. LASIX-K [Concomitant]
     Indication: HYPERTENSION
     Dosage: UNKNOWN DOSE
     Route: 048

REACTIONS (3)
  - Rash generalised [Not Recovered/Not Resolved]
  - Urticaria [Recovered/Resolved with Sequelae]
  - Muscle spasms [Recovered/Resolved]
